FAERS Safety Report 5086624-X (Version None)
Quarter: 2006Q3

REPORT INFORMATION
  Report Type: 
  Country: None (occurrence: None)
  Receive Date: 20060703
  Receipt Date: 20050916
  Transmission Date: 20061208
  Serious: No
  Sender: FDA-Public Use
  Company Number: 2005S1009220

PATIENT
  Age: 57 Year
  Sex: Female

DRUGS (16)
  1. CLOZAPINE [Suspect]
     Indication: SCHIZOAFFECTIVE DISORDER
     Dosage: SEE IMAGE
     Route: 048
     Dates: start: 20020801, end: 20050909
  2. CLOZAPINE [Suspect]
     Indication: SCHIZOAFFECTIVE DISORDER
     Dosage: SEE IMAGE
     Route: 048
     Dates: start: 20020801, end: 20050909
  3. CLOZAPINE [Suspect]
     Indication: SCHIZOAFFECTIVE DISORDER
     Dosage: SEE IMAGE
     Route: 048
     Dates: start: 20050912
  4. CLOZAPINE [Suspect]
     Indication: SCHIZOAFFECTIVE DISORDER
     Dosage: SEE IMAGE
     Route: 048
     Dates: start: 20050912
  5. QUETIAPINE FUMARATE [Concomitant]
  6. VALPROATE SODIUM [Concomitant]
  7. CALCIUM CARBONATE [Concomitant]
  8. ENALAPRIL MALEATE [Concomitant]
  9. PANTOPRAZOLE SODIUM [Concomitant]
  10. LEVOTHYROXINE SODIUM [Concomitant]
  11. RALOXIFENE HCL [Concomitant]
  12. FUROSEMIDE [Concomitant]
  13. NADOLOL [Concomitant]
  14. DOCUSATE SODIUM [Concomitant]
  15. VITAMINS NOS [Concomitant]
  16. FLUOXETINE HYDROCHLORIDE [Concomitant]

REACTIONS (1)
  - GRANULOCYTOPENIA [None]
